FAERS Safety Report 9014707 (Version 1)
Quarter: 2013Q1

REPORT INFORMATION
  Report Type: Spontaneous
  Country: US (occurrence: US)
  Receive Date: 20130115
  Receipt Date: 20130115
  Transmission Date: 20140127
  Serious: Yes (Hospitalization, Other)
  Sender: FDA-Public Use
  Company Number: US-009507513-1301USA003578

PATIENT
  Age: 45 Year
  Sex: Female

DRUGS (7)
  1. SINGULAIR [Suspect]
     Dosage: UNK
     Route: 048
  2. SERETIDE DISKUS [Suspect]
     Dosage: UNK
  3. SERETIDE DISKUS [Suspect]
     Dosage: 2 PUFF, QD
  4. XOLAIR [Suspect]
     Dosage: 375 MG, Q2W
  5. INIPOMP [Concomitant]
     Indication: ASTHMA
     Dosage: 40 MG, UNK
  6. CHRONADALATE [Concomitant]
     Indication: PRODUCT USED FOR UNKNOWN INDICATION
  7. BIPRETERAX (INDAPAMIDE (+) PERINDOPRIL ARGININE) [Concomitant]
     Route: 065

REACTIONS (2)
  - Breast cancer [Unknown]
  - Hiatus hernia [Unknown]
